FAERS Safety Report 4552170-2 (Version None)
Quarter: 2004Q4

REPORT INFORMATION
  Report Type: 
  Country: None (occurrence: None)
  Receive Date: 20041217
  Receipt Date: 20040823
  Transmission Date: 20050328
  Serious: No
  Sender: FDA-Public Use
  Company Number: 2004-BP-06058BP

PATIENT
  Age: 59 Year
  Sex: Female
  Weight: 75 kg

DRUGS (5)
  1. SPIRIVA [Suspect]
     Indication: CHRONIC OBSTRUCTIVE AIRWAYS DISEASE
     Dosage: 18 MCG (18 MCG, 1 IN 1 D),IH
     Dates: start: 20040520, end: 20040604
  2. PULMICORT [Concomitant]
  3. FORADIL [Concomitant]
  4. ALBUTEROL [Concomitant]
  5. PREDNISONE [Concomitant]

REACTIONS (1)
  - DYSPNOEA [None]
